FAERS Safety Report 7573375-2 (Version None)
Quarter: 2011Q2

REPORT INFORMATION
  Report Type: 
  Country: None (occurrence: None)
  Receive Date: 20110627
  Receipt Date: 20110622
  Transmission Date: 20111010
  Serious: Yes (Death)
  Sender: FDA-Public Use
  Company Number: PHHY2011FR55528

PATIENT
  Sex: Male

DRUGS (5)
  1. TEGRETOL [Suspect]
     Dosage: 200 MG, BID
     Dates: start: 20080901
  2. TEGRETOL [Suspect]
     Dosage: 100 MG, BID
     Dates: start: 20080901
  3. CLONAZEPAM [Concomitant]
     Dosage: UNK UKN, UNK
     Dates: end: 20060101
  4. TEGRETOL [Suspect]
     Dosage: 400 MG, BID
     Dates: start: 20080301, end: 20080901
  5. TEGRETOL [Suspect]
     Indication: EPILEPSY
     Dosage: 600 MG, BID

REACTIONS (3)
  - MALAISE [None]
  - EPILEPSY [None]
  - TONGUE BITING [None]
